FAERS Safety Report 10036411 (Version 2)
Quarter: 2014Q2

REPORT INFORMATION
  Report Type: Other
  Country: US (occurrence: US)
  Receive Date: 20140325
  Receipt Date: 20140521
  Transmission Date: 20141212
  Serious: Yes (Hospitalization)
  Sender: FDA-Public Use
  Company Number: US-ACORDA-ACO_102416_2014

PATIENT
  Age: 47 Year
  Sex: Female
  Weight: 45.81 kg

DRUGS (3)
  1. AMPYRA [Suspect]
     Indication: GAIT DISTURBANCE
     Dosage: 10 MG, BID
     Route: 048
     Dates: start: 2011, end: 201403
  2. OLANZAPINE [Concomitant]
     Indication: PRODUCT USED FOR UNKNOWN INDICATION
     Dosage: 2.5MG, NIGHTLY
     Route: 065
  3. COPAXONE [Concomitant]
     Indication: MULTIPLE SCLEROSIS
     Dosage: 20 MG, NIGHTLY
     Route: 058

REACTIONS (6)
  - Incoherent [Recovering/Resolving]
  - Nervousness [Recovering/Resolving]
  - Gait disturbance [Recovering/Resolving]
  - Restlessness [Recovering/Resolving]
  - Mood altered [Recovering/Resolving]
  - Excessive exercise [Recovering/Resolving]
